FAERS Safety Report 7468935-3 (Version None)
Quarter: 2011Q2

REPORT INFORMATION
  Report Type: 
  Country: None (occurrence: None)
  Receive Date: 20110510
  Receipt Date: 20110308
  Transmission Date: 20111010
  Serious: No
  Sender: FDA-Public Use
  Company Number: A0917175A

PATIENT
  Age: 46 Year
  Sex: Female

DRUGS (2)
  1. VELTIN [Suspect]
     Indication: STAPHYLOCOCCAL INFECTION
     Dosage: 1APP THREE TIMES PER DAY
     Route: 061
     Dates: start: 20110304, end: 20110308
  2. CEPHALIN [Concomitant]

REACTIONS (3)
  - INFLAMMATION [None]
  - SCAB [None]
  - ERYTHEMA [None]
